FAERS Safety Report 8335316-X (Version None)
Quarter: 2012Q2

REPORT INFORMATION
  Report Type: 
  Country: None (occurrence: None)
  Receive Date: 20120503
  Receipt Date: 20120427
  Transmission Date: 20120825
  Serious: Yes (Other)
  Sender: FDA-Public Use
  Company Number: PHHY2012ES036592

PATIENT
  Age: 64 Year
  Sex: Male

DRUGS (3)
  1. FOLINIC ACID [Concomitant]
     Indication: COLORECTAL CANCER
  2. OXALIPLATIN [Suspect]
     Indication: COLORECTAL CANCER
  3. FLUOROURACIL [Concomitant]
     Indication: COLORECTAL CANCER

REACTIONS (6)
  - VISUAL ACUITY REDUCED [None]
  - VISUAL IMPAIRMENT [None]
  - RETINITIS PIGMENTOSA [None]
  - CONCOMITANT DISEASE PROGRESSION [None]
  - BLINDNESS [None]
  - RETINAL HAEMORRHAGE [None]
